FAERS Safety Report 8504560-0 (Version None)
Quarter: 2012Q3

REPORT INFORMATION
  Report Type: 
  Country: None (occurrence: None)
  Receive Date: 20120711
  Receipt Date: 20120704
  Transmission Date: 20120928
  Serious: Yes (Other)
  Sender: FDA-Public Use
  Company Number: SG-ABBOTT-12P-141-0953608-00

PATIENT
  Age: 60 Year
  Sex: Female

DRUGS (2)
  1. CLARITHROMYCIN [Suspect]
     Indication: PYREXIA
     Route: 048
  2. CLARITHROMYCIN [Suspect]
     Indication: PHARYNGITIS

REACTIONS (1)
  - RASH PUSTULAR [None]
